FAERS Safety Report 9224084 (Version 1)
Quarter: 2013Q2

REPORT INFORMATION
  Report Type: Spontaneous
  Country: US (occurrence: US)
  Receive Date: 20130411
  Receipt Date: 20130411
  Transmission Date: 20140414
  Serious: No
  Sender: FDA-Public Use
  Company Number: US-009507513-1304USA003042

PATIENT
  Sex: 0

DRUGS (2)
  1. AZASITE [Suspect]
     Dosage: ONE DROP IN EACH EYE TWICE DAILY FOR THE FIRST TWO DAYS
     Route: 031
     Dates: start: 20130329
  2. AZASITE [Suspect]
     Dosage: ONE DROP IN EACH EYE ONCE DAILY FOR THE NEXT FIVE DAYS

REACTIONS (3)
  - Drug dose omission [Unknown]
  - Product quality issue [Unknown]
  - No adverse event [Unknown]
